FAERS Safety Report 7882243-8 (Version None)
Quarter: 2011Q4

REPORT INFORMATION
  Report Type: 
  Country: None (occurrence: None)
  Receive Date: 20111101
  Receipt Date: 20110610
  Transmission Date: 20120403
  Serious: No
  Sender: FDA-Public Use
  Company Number: US-AMGEN-USASP2011030093

PATIENT
  Age: 71 Year
  Sex: Female

DRUGS (1)
  1. ENBREL [Suspect]
     Indication: RHEUMATOID ARTHRITIS
     Dosage: 50 MG, QWK
     Dates: start: 20110426, end: 20110527

REACTIONS (9)
  - DRY SKIN [None]
  - PAIN [None]
  - ROTATOR CUFF SYNDROME [None]
  - ARTHRALGIA [None]
  - CONTUSION [None]
  - GOUT [None]
  - RHEUMATOID FACTOR POSITIVE [None]
  - FALL [None]
  - CHEST PAIN [None]
